FAERS Safety Report 10557947 (Version 3)
Quarter: 2014Q4

REPORT INFORMATION
  Report Type: Spontaneous
  Country: US (occurrence: US)
  Receive Date: 20141031
  Receipt Date: 20141222
  Transmission Date: 20150529
  Serious: Yes (Other)
  Sender: FDA-Public Use
  Company Number: US-PFIZER INC-2014296739

PATIENT
  Age: 58 Year
  Sex: Female
  Weight: 103 kg

DRUGS (9)
  1. LEVEMIR [Concomitant]
     Active Substance: INSULIN DETEMIR
     Indication: DIABETES MELLITUS
     Dosage: 80 MG, 2X/DAY (ONCE IN MORNING AND ONCE AT NIGHT)
  2. LOSARTAN [Concomitant]
     Active Substance: LOSARTAN
     Dosage: UNK
  3. NOVOLOG MIX 50/50 [Concomitant]
     Active Substance: INSULIN ASPART
     Dosage: UNK, 3X/DAY
  4. SUTENT [Suspect]
     Active Substance: SUNITINIB MALATE
     Indication: METASTATIC RENAL CELL CARCINOMA
     Dosage: 37.5 MG, CYCLIC (1ST CYCLE)
     Route: 048
     Dates: start: 20140909
  5. ALLEGRA [Concomitant]
     Active Substance: FEXOFENADINE HYDROCHLORIDE
     Dosage: UNK
  6. MULTIVITAMINS [Concomitant]
     Active Substance: VITAMINS
  7. BABY ASPIRIN [Concomitant]
     Active Substance: ASPIRIN
     Dosage: UNK
  8. VITAMIN D [Concomitant]
     Active Substance: CHOLECALCIFEROL
     Dosage: UNK
  9. SUTENT [Suspect]
     Active Substance: SUNITINIB MALATE
     Dosage: 37.5 MG, CYCLIC (2ND CYCLE)
     Route: 048
     Dates: start: 20141021, end: 20141110

REACTIONS (20)
  - Sleep apnoea syndrome [Unknown]
  - Dermatitis acneiform [Unknown]
  - Blister [Recovered/Resolved]
  - Rash pruritic [Unknown]
  - Yellow skin [Unknown]
  - Fatigue [Recovered/Resolved]
  - Swelling face [Recovered/Resolved]
  - Weight increased [Recovered/Resolved]
  - Hypopnoea [Unknown]
  - Dysgeusia [Recovered/Resolved]
  - Swelling [Recovered/Resolved]
  - Gastric infection [Unknown]
  - Amnesia [Unknown]
  - Blood pressure increased [Unknown]
  - Stomatitis [Unknown]
  - Decreased appetite [Recovered/Resolved]
  - Skin discolouration [Not Recovered/Not Resolved]
  - Disturbance in attention [Recovered/Resolved]
  - Blood glucose decreased [Recovered/Resolved]
  - Palmar-plantar erythrodysaesthesia syndrome [Unknown]

NARRATIVE: CASE EVENT DATE: 2014
